FAERS Safety Report 25090570 (Version 1)
Quarter: 2025Q1

REPORT INFORMATION
  Report Type: Spontaneous
  Country: US (occurrence: None)
  Receive Date: 20250315
  Receipt Date: 20250315
  Transmission Date: 20250409
  Serious: Yes (Life-Threatening, Hospitalization, Disabling)
  Sender: FDA-CTU
  Company Number: None

PATIENT
  Age: 54 Year
  Sex: Female
  Weight: 67.5 kg

DRUGS (6)
  1. NITROUS OXIDE [Suspect]
     Active Substance: NITROUS OXIDE
     Dates: start: 20181001, end: 20210702
  2. AQMITRIPTYLINE [Concomitant]
  3. ALORAZOLAM [Concomitant]
  4. DAILY PROBIOTIC [Concomitant]
  5. WOMEN^S VITAMIN [Concomitant]
  6. VITAMIN D3 [Concomitant]
     Active Substance: CHOLECALCIFEROL

REACTIONS (9)
  - Central nervous system lesion [None]
  - Balance disorder [None]
  - Gait disturbance [None]
  - Confusional state [None]
  - Depression [None]
  - Speech disorder [None]
  - Cystitis [None]
  - Urinary tract infection [None]
  - Brain injury [None]

NARRATIVE: CASE EVENT DATE: 20210702
